FAERS Safety Report 22313245 (Version 1)
Quarter: 2023Q2

REPORT INFORMATION
  Report Type: Spontaneous
  Country: US (occurrence: US)
  Receive Date: 20230512
  Receipt Date: 20230512
  Transmission Date: 20230722
  Serious: Yes (Death, Life-Threatening, Hospitalization, Other)
  Sender: FDA-Public Use
  Company Number: US-SA-2017SA115992

PATIENT
  Age: 58 Year
  Sex: Male

DRUGS (3)
  1. MYCOPHENOLATE MOFETIL [Suspect]
     Active Substance: MYCOPHENOLATE MOFETIL
     Indication: Immunosuppression
     Dosage: UNK UNK,UNK
  2. CAMPATH [Suspect]
     Active Substance: ALEMTUZUMAB
     Indication: Immunosuppression
     Dosage: UNK
     Route: 042
  3. TACROLIMUS [Suspect]
     Active Substance: TACROLIMUS
     Indication: Immunosuppression
     Dosage: UNK UNK,UNK

REACTIONS (14)
  - Disseminated cryptococcosis [Fatal]
  - Splenic rupture [Fatal]
  - Splenomegaly [Fatal]
  - Pulseless electrical activity [Fatal]
  - Myocarditis infectious [Fatal]
  - Hypotension [Fatal]
  - Abdominal pain upper [Fatal]
  - Retching [Fatal]
  - Haemorrhagic infarction [Fatal]
  - Night sweats [Fatal]
  - Pneumonia necrotising [Fatal]
  - Pulmonary mass [Fatal]
  - Lung opacity [Fatal]
  - Hepatitis A [Fatal]
